FAERS Safety Report 22004865 (Version 1)
Quarter: 2023Q1

REPORT INFORMATION
  Report Type: Spontaneous
  Country: US (occurrence: None)
  Receive Date: 20230216
  Receipt Date: 20230216
  Transmission Date: 20230417
  Serious: No
  Sender: FDA-Public Use
  Company Number: None

PATIENT
  Age: 30 Year
  Sex: Female

DRUGS (1)
  1. ADBRY [Suspect]
     Active Substance: TRALOKINUMAB-LDRM
     Indication: Dermatitis allergic
     Dosage: OTHER QUANTITY : 300MG (2 SYRINGES(;?FREQUENCY : EVERY OTHER WEEK;?
     Route: 058
     Dates: start: 202212

REACTIONS (1)
  - Sinusitis [None]
